FAERS Safety Report 4355631-4 (Version None)
Quarter: 2004Q2

REPORT INFORMATION
  Report Type: 
  Country: None (occurrence: None)
  Receive Date: 20040505
  Receipt Date: 20030426
  Transmission Date: 20050107
  Serious: Yes (Death)
  Sender: FDA-Public Use
  Company Number: US-JNJFOC-20040405847

PATIENT
  Age: 45 Year
  Sex: Female

DRUGS (1)
  1. TOPAMAX [Suspect]
     Dosage: 100 MG

REACTIONS (1)
  - DEATH [None]
